FAERS Safety Report 14812785 (Version 1)
Quarter: 2018Q2

REPORT INFORMATION
  Report Type: Spontaneous
  Country: FR (occurrence: FR)
  Receive Date: 20180426
  Receipt Date: 20180426
  Transmission Date: 20180711
  Serious: Yes (Other)
  Sender: FDA-Public Use
  Company Number: FR-MERCK KGAA-2046520

PATIENT
  Age: 60 Year
  Sex: Female

DRUGS (1)
  1. NOVOTHYROX [Suspect]
     Active Substance: LEVOTHYROXINE SODIUM
     Indication: THYROID DISORDER

REACTIONS (25)
  - Arthralgia [Not Recovered/Not Resolved]
  - Dyspepsia [None]
  - Gastrooesophageal reflux disease [None]
  - Depression [None]
  - Impaired driving ability [None]
  - Blood thyroid stimulating hormone decreased [None]
  - Abdominal pain upper [None]
  - Pain [None]
  - Neck pain [None]
  - Social avoidant behaviour [None]
  - Weight increased [None]
  - Apathy [None]
  - Disturbance in attention [None]
  - Skeletal dysplasia [Not Recovered/Not Resolved]
  - Asthenia [None]
  - Spinal pain [Not Recovered/Not Resolved]
  - Gait disturbance [None]
  - Back pain [None]
  - Headache [None]
  - Middle insomnia [None]
  - Myalgia [None]
  - Loss of personal independence in daily activities [None]
  - Anger [None]
  - Nervousness [None]
  - Fatigue [None]

NARRATIVE: CASE EVENT DATE: 20170224
